FAERS Safety Report 21638305 (Version 1)
Quarter: 2022Q4

REPORT INFORMATION
  Report Type: Spontaneous
  Country: CA (occurrence: CA)
  Receive Date: 20221124
  Receipt Date: 20221124
  Transmission Date: 20230113
  Serious: Yes (Disabling)
  Sender: FDA-Public Use
  Company Number: None

PATIENT
  Age: 32 Year
  Sex: Male
  Weight: 80 kg

DRUGS (2)
  1. FLUOXETINE [Suspect]
     Active Substance: FLUOXETINE HYDROCHLORIDE
     Indication: Depression
     Route: 048
  2. RAMIPRIL [Concomitant]
     Active Substance: RAMIPRIL
     Route: 065

REACTIONS (8)
  - Binge eating [Unknown]
  - Eating disorder [Unknown]
  - Impaired work ability [Unknown]
  - Insomnia [Unknown]
  - Product substitution issue [Unknown]
  - Starvation [Unknown]
  - Suicidal ideation [Unknown]
  - Weight decreased [Unknown]
